FAERS Safety Report 20694643 (Version 1)
Quarter: 2022Q2

REPORT INFORMATION
  Report Type: Spontaneous
  Country: JP (occurrence: JP)
  Receive Date: 20220411
  Receipt Date: 20220411
  Transmission Date: 20220721
  Serious: Yes (Other)
  Sender: FDA-Public Use
  Company Number: JP-INGENUS PHARMACEUTICALS, LLC-2022INF000034

PATIENT
  Age: 46 Year
  Sex: Female

DRUGS (3)
  1. DOCETAXEL [Suspect]
     Active Substance: DOCETAXEL
     Indication: Oesophageal squamous cell carcinoma stage IV
     Dosage: 35 MILLIGRAM/SQ. METER, ON DAYS 1 AND 15
     Route: 065
  2. CISPLATIN [Suspect]
     Active Substance: CISPLATIN
     Indication: Oesophageal squamous cell carcinoma stage IV
     Dosage: 40 MILLIGRAM/SQ. METER, ON DAYS 1 AND 15
     Route: 065
  3. FLUOROURACIL [Suspect]
     Active Substance: FLUOROURACIL
     Indication: Oesophageal squamous cell carcinoma stage IV
     Dosage: 400 MILLIGRAM/SQ. METER, ON DAYS 1?5 AND 15?19
     Route: 065

REACTIONS (3)
  - Oesophageal fistula [Unknown]
  - Gastrointestinal perforation [Unknown]
  - Peritonitis [Recovering/Resolving]
